FAERS Safety Report 10573187 (Version 3)
Quarter: 2015Q2

REPORT INFORMATION
  Report Type: Spontaneous
  Country: US (occurrence: US)
  Receive Date: 20141110
  Receipt Date: 20150526
  Transmission Date: 20150821
  Serious: Yes (Death, Other)
  Sender: FDA-Public Use
  Company Number: US-SANOFI-AVENTIS-2012SA037863

PATIENT
  Age: 55 Year
  Sex: Female

DRUGS (1)
  1. PLAVIX [Suspect]
     Active Substance: CLOPIDOGREL BISULFATE
     Indication: ACUTE CORONARY SYNDROME
     Route: 048
     Dates: start: 20000110, end: 20120103

REACTIONS (5)
  - Myocardial infarction [Fatal]
  - Procedural haemorrhage [Recovered/Resolved]
  - Cerebrovascular accident [Recovered/Resolved]
  - Gastrointestinal haemorrhage [Recovered/Resolved]
  - Injury [Unknown]

NARRATIVE: CASE EVENT DATE: 20110110
